FAERS Safety Report 5424473-0 (Version None)
Quarter: 2007Q3

REPORT INFORMATION
  Report Type: 
  Country: None (occurrence: None)
  Receive Date: 20070822
  Receipt Date: 20070810
  Transmission Date: 20080115
  Serious: Yes (Death)
  Sender: FDA-Public Use
  Company Number: GXKR2007GB06595

PATIENT
  Age: 75 Year
  Sex: Female

DRUGS (3)
  1. CARBAMAZEPINE [Suspect]
     Indication: BIPOLAR DISORDER
     Dosage: 200 MG, BID
  2. SERTRALINE [Suspect]
     Indication: BIPOLAR DISORDER
     Dosage: 5 MG, BID
  3. PERICIAZINE(PERICIAZINE) [Suspect]
     Indication: BIPOLAR DISORDER
     Dosage: 50 MG, TID

REACTIONS (6)
  - ACUTE RESPIRATORY DISTRESS SYNDROME [None]
  - LUNG INJURY [None]
  - MULTI-ORGAN FAILURE [None]
  - PNEUMONIA [None]
  - PULMONARY OEDEMA [None]
  - RESPIRATORY FAILURE [None]
